FAERS Safety Report 7392778-2 (Version None)
Quarter: 2011Q2

REPORT INFORMATION
  Report Type: 
  Country: None (occurrence: None)
  Receive Date: 20110404
  Receipt Date: 20110321
  Transmission Date: 20111010
  Serious: Yes (Other)
  Sender: FDA-Public Use
  Company Number: PHHY2011US03340

PATIENT
  Sex: Female

DRUGS (7)
  1. EXJADE [Suspect]
     Dates: start: 20101101
  2. ATENOLOL [Concomitant]
     Dosage: 25 MG,
     Route: 048
  3. DIPHENHYDRAMINE HCL [Concomitant]
     Dosage: 25 MG,
  4. ACETAMINOPHEN [Concomitant]
     Dosage: 650 MG,
     Route: 048
  5. AMLODIPINE [Concomitant]
     Dosage: 10 MG,
     Route: 048
  6. EXJADE [Suspect]
     Dosage: 250 MG FIVE TIMES A DAY
     Route: 048
     Dates: start: 20101202
  7. LOVASTATIN [Concomitant]
     Dosage: 40 MG,

REACTIONS (9)
  - BACK PAIN [None]
  - HAEMOGLOBIN DECREASED [None]
  - DIARRHOEA [None]
  - ASTHENIA [None]
  - FATIGUE [None]
  - NASOPHARYNGITIS [None]
  - BLOOD PRESSURE DECREASED [None]
  - MYELOFIBROSIS [None]
  - SERUM FERRITIN INCREASED [None]
